FAERS Safety Report 15990904 (Version 1)
Quarter: 2019Q1

REPORT INFORMATION
  Report Type: Report from Study
  Country: US (occurrence: US)
  Receive Date: 20190221
  Receipt Date: 20190221
  Transmission Date: 20190418
  Serious: Yes (Hospitalization, Other)
  Sender: FDA-Public Use
  Company Number: US-GILEAD-2019-0392057

PATIENT
  Age: 26 Year
  Sex: Male

DRUGS (1)
  1. AZTREONAM LYSINE [Suspect]
     Active Substance: AZTREONAM LYSINE
     Indication: CYSTIC FIBROSIS
     Dosage: INHALE 1 VIAL VIA ALTERA NEBULIZER THREE TIMES DAILY FOR 28 DAYS ON/ 28 DAYS OFF
     Route: 055
     Dates: start: 20160505

REACTIONS (1)
  - Cystic fibrosis [Recovering/Resolving]

NARRATIVE: CASE EVENT DATE: 20190215
